FAERS Safety Report 5509785-4 (Version None)
Quarter: 2007Q4

REPORT INFORMATION
  Report Type: 
  Country: None (occurrence: None)
  Receive Date: 20071107
  Receipt Date: 20071107
  Transmission Date: 20080405
  Serious: Yes (Hospitalization)
  Sender: FDA-Public Use
  Company Number: None

PATIENT
  Age: 54 Year
  Sex: Male

DRUGS (1)
  1. AMOXICILLIN [Suspect]
     Indication: TOOTHACHE
     Dosage: ?MG ONCE PO
     Route: 048
     Dates: start: 20070905, end: 20070905

REACTIONS (7)
  - CHEST PAIN [None]
  - CHILLS [None]
  - DOCUMENTED HYPERSENSITIVITY TO ADMINISTERED DRUG [None]
  - DRUG ABUSE [None]
  - NAUSEA [None]
  - SIMILAR REACTION ON PREVIOUS EXPOSURE TO DRUG [None]
  - VOMITING [None]
